FAERS Safety Report 4281026-8 (Version None)
Quarter: 2004Q1

REPORT INFORMATION
  Report Type: 
  Country: None (occurrence: None)
  Receive Date: 20040129
  Receipt Date: 20030303
  Transmission Date: 20041129
  Serious: Yes (Other)
  Sender: FDA-Public Use
  Company Number: US-BRISTOL-MYERS SQUIBB COMPANY-12200614

PATIENT
  Age: 23 Month
  Sex: Female
  Weight: 10 kg

DRUGS (1)
  1. CISPLATIN [Suspect]
     Indication: HEPATOBLASTOMA
     Route: 042
     Dates: start: 20020301, end: 20020401

REACTIONS (1)
  - DEAFNESS [None]
